FAERS Safety Report 17765871 (Version 1)
Quarter: 2020Q2

REPORT INFORMATION
  Report Type: Report from Study
  Country: FR (occurrence: FR)
  Receive Date: 20200511
  Receipt Date: 20200511
  Transmission Date: 20200714
  Serious: Yes (Disabling)
  Sender: FDA-Public Use
  Company Number: FR-ASTRAZENECA-2020SE60929

PATIENT
  Age: 50 Year
  Sex: Female

DRUGS (2)
  1. SYMBICORT [Suspect]
     Active Substance: BUDESONIDE\FORMOTEROL FUMARATE DIHYDRATE
     Indication: ASTHMA
     Route: 055
  2. SOLUPRED [Concomitant]
     Indication: ASTHMATIC CRISIS
     Route: 048

REACTIONS (2)
  - Asthmatic crisis [Unknown]
  - Drug ineffective [Recovered/Resolved]
